FAERS Safety Report 15260925 (Version 1)
Quarter: 2018Q3

REPORT INFORMATION
  Report Type: Spontaneous
  Country: HU (occurrence: HU)
  Receive Date: 20180809
  Receipt Date: 20180809
  Transmission Date: 20181010
  Serious: Yes (Death, Life-Threatening)
  Sender: FDA-Public Use
  Company Number: HU-CELGENEUS-HUN-20180801445

PATIENT
  Age: 71 Year
  Sex: Female

DRUGS (14)
  1. VENETOCLAX. [Concomitant]
     Active Substance: VENETOCLAX
     Indication: ACUTE MYELOID LEUKAEMIA
     Route: 065
  2. AZACITIDINE. [Suspect]
     Active Substance: AZACITIDINE
     Dosage: 9.375 MILLIGRAM/SQ. METER
     Route: 058
     Dates: start: 20180312, end: 20180702
  3. CALCIUM CARBONATE. [Concomitant]
     Active Substance: CALCIUM CARBONATE
     Indication: HYPOCALCAEMIA
     Dosage: 500 MILLIGRAM
     Route: 048
     Dates: start: 20171016
  4. MYCAMIN [Concomitant]
     Indication: ASCITES
     Dosage: 100 MILLIGRAM
     Route: 041
     Dates: start: 20180701, end: 20180702
  5. FURON [Concomitant]
     Active Substance: FUROSEMIDE
     Indication: ASCITES
     Dosage: 40 MILLIGRAM
     Route: 048
     Dates: start: 20180702
  6. AZACITIDINE. [Suspect]
     Active Substance: AZACITIDINE
     Indication: ACUTE MYELOID LEUKAEMIA
     Dosage: 18.75 MILLIGRAM/SQ. METER
     Route: 058
     Dates: start: 20171016, end: 20180130
  7. ACYCLOVIR. [Concomitant]
     Active Substance: ACYCLOVIR
     Indication: ANTIVIRAL PROPHYLAXIS
     Dosage: 500 MILLIGRAM
     Route: 048
     Dates: start: 20171016
  8. VITAMIN D3 [Concomitant]
     Active Substance: CHOLECALCIFEROL
     Indication: ANTIVIRAL PROPHYLAXIS
     Dosage: 500 MILLIGRAM
     Route: 048
     Dates: start: 20171016
  9. AMIKACIN. [Concomitant]
     Active Substance: AMIKACIN
     Dosage: 1 GRAM
     Route: 041
     Dates: start: 20180701, end: 20180701
  10. MEROPENEM. [Concomitant]
     Active Substance: MEROPENEM
     Indication: FEBRILE NEUTROPENIA
     Dosage: 3 GRAM
     Route: 041
     Dates: start: 20180604, end: 20180612
  11. KLION [Concomitant]
     Indication: FEBRILE NEUTROPENIA
     Dosage: 1500 MILLIGRAM
     Route: 041
     Dates: start: 20180630, end: 20180702
  12. VENTER [Concomitant]
     Indication: PROPHYLAXIS
     Dosage: 3 MILLIGRAM
     Route: 041
     Dates: start: 20180701, end: 20180702
  13. AMIKACIN. [Concomitant]
     Active Substance: AMIKACIN
     Indication: FEBRILE NEUTROPENIA
     Dosage: 1 GRAM
     Route: 041
     Dates: start: 20180601, end: 20180611
  14. MEROPENEM. [Concomitant]
     Active Substance: MEROPENEM
     Dosage: 3 GRAM
     Route: 041
     Dates: start: 20180702

REACTIONS (1)
  - Sudden death [Fatal]

NARRATIVE: CASE EVENT DATE: 20180726
